FAERS Safety Report 14743013 (Version 1)
Quarter: 2018Q2

REPORT INFORMATION
  Report Type: Spontaneous
  Country: US (occurrence: US)
  Receive Date: 20180410
  Receipt Date: 20180410
  Transmission Date: 20180711
  Serious: No
  Sender: FDA-Public Use
  Company Number: US-SEPTODONT-201704351

PATIENT
  Age: 17 Year
  Sex: Male

DRUGS (1)
  1. LIDOCAINE CARTRIDGE 2% (EPINEPHRINE\LIDOCAINE) [Suspect]
     Active Substance: EPINEPHRINE\LIDOCAINE
     Indication: LOCAL ANAESTHESIA
     Dates: start: 20171024, end: 20171024

REACTIONS (1)
  - Drug ineffective [Recovered/Resolved]

NARRATIVE: CASE EVENT DATE: 20171024
